FAERS Safety Report 15081812 (Version 1)
Quarter: 2018Q2

REPORT INFORMATION
  Report Type: Spontaneous
  Country: US (occurrence: US)
  Receive Date: 20180628
  Receipt Date: 20180628
  Transmission Date: 20180711
  Serious: No
  Sender: FDA-Public Use
  Company Number: US-PFIZER INC-2018258149

PATIENT
  Age: 8 Year
  Sex: Female
  Weight: 23.59 kg

DRUGS (1)
  1. ZARONTIN [Suspect]
     Active Substance: ETHOSUXIMIDE
     Dosage: 1000 MG, DAILY [FOUR 250 MG CAPSULES PER DAY]

REACTIONS (3)
  - Drug level above therapeutic [Unknown]
  - Drug prescribing error [Unknown]
  - Abdominal discomfort [Unknown]
